FAERS Safety Report 6469353-7 (Version None)
Quarter: 2009Q4

REPORT INFORMATION
  Report Type: 
  Country: None (occurrence: None)
  Receive Date: 20091203
  Receipt Date: 20070926
  Transmission Date: 20100525
  Serious: Yes (Other)
  Sender: FDA-Public Use
  Company Number: US-ELI_LILLY_AND_COMPANY-US200709006369

PATIENT
  Sex: Male
  Weight: 63.492 kg

DRUGS (4)
  1. STRATTERA [Suspect]
     Dosage: 80 MG, DAILY (1/D)
     Route: 048
     Dates: start: 20030101
  2. STRATTERA [Suspect]
     Dosage: 40 MG, UNK
     Route: 048
  3. RITALIN [Concomitant]
     Indication: AUTISM SPECTRUM DISORDER
     Dosage: UNK, UNK
  4. CELEXA [Concomitant]
     Indication: AUTISM SPECTRUM DISORDER
     Dosage: UNK, UNK

REACTIONS (4)
  - ATAXIA [None]
  - CONFUSIONAL STATE [None]
  - DRUG INEFFECTIVE [None]
  - LOSS OF CONSCIOUSNESS [None]
